FAERS Safety Report 5955475-3 (Version None)
Quarter: 2008Q4

REPORT INFORMATION
  Report Type: 
  Country: None (occurrence: None)
  Receive Date: 20081113
  Receipt Date: 20081113
  Transmission Date: 20090506
  Serious: Yes (Hospitalization)
  Sender: FDA-Public Use
  Company Number: None

PATIENT
  Age: 60 Year
  Sex: Male
  Weight: 81 kg

DRUGS (1)
  1. EPINEPHRINE [Suspect]
     Indication: SURGERY
     Dosage: .3 ML ONCE EYE
     Route: 047
     Dates: start: 20081023, end: 20081023

REACTIONS (2)
  - POST PROCEDURAL COMPLICATION [None]
  - TOXIC ANTERIOR SEGMENT SYNDROME [None]
